FAERS Safety Report 6073747-1 (Version None)
Quarter: 2009Q1

REPORT INFORMATION
  Report Type: 
  Country: None (occurrence: None)
  Receive Date: 20090209
  Receipt Date: 20090209
  Transmission Date: 20090719
  Serious: Yes (Hospitalization)
  Sender: FDA-Public Use
  Company Number: None

PATIENT
  Age: 23 Year
  Sex: Female

DRUGS (2)
  1. NAPROXEN [Suspect]
     Indication: OVARIAN CYST
     Dosage: ORAL;;0,0
     Dates: start: 20081004, end: 20081006
  2. NAPROXEN [Suspect]
     Indication: PAIN
     Dosage: ORAL;;0,0
     Dates: start: 20081004, end: 20081006

REACTIONS (2)
  - ANGIOEDEMA [None]
  - SWELLING FACE [None]
